FAERS Safety Report 4589802-9 (Version None)
Quarter: 2005Q1

REPORT INFORMATION
  Report Type: 
  Country: None (occurrence: None)
  Receive Date: 20050223
  Receipt Date: 20050210
  Transmission Date: 20050727
  Serious: Yes (Hospitalization)
  Sender: FDA-Public Use
  Company Number: FR-GLAXOSMITHKLINE-B0371227A

PATIENT
  Age: 64 Year
  Sex: Male
  Weight: 83 kg

DRUGS (10)
  1. AVANDIA [Suspect]
     Indication: DIABETES MELLITUS NON-INSULIN-DEPENDENT
     Dosage: 4MG PER DAY
     Route: 048
     Dates: start: 20040815
  2. NOVONORM [Suspect]
     Dosage: 2MG THREE TIMES PER DAY
     Route: 048
     Dates: start: 20041105
  3. CARDENSIEL [Concomitant]
     Dosage: 125MG PER DAY
     Route: 048
     Dates: start: 19990715
  4. CORDARONE [Concomitant]
     Dosage: 200MG PER DAY
     Route: 048
     Dates: start: 19990715
  5. BENAZEPRIL HCL [Concomitant]
     Dosage: 10MG PER DAY
     Route: 048
     Dates: start: 19990715
  6. MINI-SINTROM [Concomitant]
     Dosage: 2MG PER DAY
     Route: 048
     Dates: start: 19990715
  7. LASILIX [Concomitant]
     Dosage: 40MG PER DAY
     Route: 048
  8. FRACTAL [Concomitant]
     Dosage: 20MG PER DAY
     Route: 048
  9. LOXEN LP [Concomitant]
     Dosage: 50MG THREE TIMES PER DAY
     Route: 048
  10. AMAREL [Concomitant]
     Dosage: 4MG PER DAY
     Route: 048
     Dates: end: 20041105

REACTIONS (5)
  - CHEST PAIN [None]
  - HYPOXIA [None]
  - MYOGLOBIN BLOOD DECREASED [None]
  - PARAESTHESIA [None]
  - WEIGHT INCREASED [None]
